FAERS Safety Report 4572643-6 (Version None)
Quarter: 2005Q1

REPORT INFORMATION
  Report Type: 
  Country: None (occurrence: None)
  Receive Date: 20050208
  Receipt Date: 20041103
  Transmission Date: 20050727
  Serious: No
  Sender: FDA-Public Use
  Company Number: US-GLAXOSMITHKLINE-A0532560A

PATIENT
  Sex: Female

DRUGS (3)
  1. PAXIL CR [Suspect]
     Indication: ILL-DEFINED DISORDER
     Dosage: 12.5MG PER DAY
     Route: 048
  2. ZYRTEC [Concomitant]
  3. ZANTAC [Concomitant]

REACTIONS (1)
  - PRURITUS [None]
